FAERS Safety Report 10501644 (Version 1)
Quarter: 2014Q4

REPORT INFORMATION
  Report Type: Spontaneous
  Country: US (occurrence: None)
  Receive Date: 20141006
  Receipt Date: 20141006
  Transmission Date: 20150528
  Serious: Yes (Disabling)
  Sender: FDA-Public Use
  Company Number: None

PATIENT
  Age: 51 Year
  Sex: Male
  Weight: 63.5 kg

DRUGS (2)
  1. KLONOPIN [Suspect]
     Active Substance: CLONAZEPAM
     Indication: ANXIETY
     Dosage: .5 TWICE A DAY, TWICE DAILY, TAKEN BY MOUTH
     Route: 048
     Dates: start: 20070101, end: 20141001
  2. KLONOPIN [Suspect]
     Active Substance: CLONAZEPAM
     Indication: INSOMNIA
     Dosage: .5 TWICE A DAY, TWICE DAILY, TAKEN BY MOUTH
     Route: 048
     Dates: start: 20070101, end: 20141001

REACTIONS (28)
  - Fatigue [None]
  - Quality of life decreased [None]
  - Mental impairment [None]
  - Sinus congestion [None]
  - Back pain [None]
  - Fear [None]
  - Malaise [None]
  - Depression [None]
  - Myalgia [None]
  - Paraesthesia [None]
  - Hot flush [None]
  - Hyperhidrosis [None]
  - Drug tolerance [None]
  - Impaired work ability [None]
  - Neck pain [None]
  - Unemployment [None]
  - Withdrawal syndrome [None]
  - Psychological trauma [None]
  - Anxiety [None]
  - Stomatitis [None]
  - Pain [None]
  - Nervous system disorder [None]
  - Memory impairment [None]
  - Alopecia [None]
  - Arthralgia [None]
  - Hyperacusis [None]
  - Feeling of body temperature change [None]
  - Unevaluable event [None]

NARRATIVE: CASE EVENT DATE: 20130205
